FAERS Safety Report 9718276 (Version 1)
Quarter: 2013Q4

REPORT INFORMATION
  Report Type: Spontaneous
  Country: US (occurrence: US)
  Receive Date: 20131125
  Receipt Date: 20131125
  Transmission Date: 20140711
  Serious: No
  Sender: FDA-Public Use
  Company Number: US-VIVUS-2013V1000206

PATIENT
  Age: 66 Year
  Sex: Male
  Weight: 118.04 kg

DRUGS (8)
  1. QSYMIA 3.75MG/23MG [Suspect]
     Indication: OBESITY
     Dosage: DAILY DOSE: 2 CAPSULE,
     Route: 048
     Dates: start: 20130309, end: 20130314
  2. QSYMIA 3.75MG/23MG [Suspect]
     Dosage: DAILY DOSE: 1 CAPSULE,
     Route: 048
     Dates: start: 20130315
  3. QSYMIA 3.75MG/23MG [Suspect]
     Dosage: DAILY DOSE: 1 CAPSULE,
     Route: 048
     Dates: start: 20130222, end: 20130308
  4. OMEPRAZOLE [Concomitant]
     Indication: PRODUCT USED FOR UNKNOWN INDICATION
  5. LOSARTAN [Concomitant]
     Indication: PRODUCT USED FOR UNKNOWN INDICATION
  6. HCTZ [Concomitant]
     Indication: PRODUCT USED FOR UNKNOWN INDICATION
  7. PRAVASTATIN [Concomitant]
     Indication: PRODUCT USED FOR UNKNOWN INDICATION
  8. METFORMIN [Concomitant]
     Indication: PRODUCT USED FOR UNKNOWN INDICATION

REACTIONS (2)
  - Inappropriate schedule of drug administration [Unknown]
  - Fatigue [Unknown]
